FAERS Safety Report 4390488-7 (Version None)
Quarter: 2004Q2

REPORT INFORMATION
  Report Type: 
  Country: None (occurrence: None)
  Receive Date: 20040630
  Receipt Date: 20040623
  Transmission Date: 20050107
  Serious: Yes (Other)
  Sender: FDA-Public Use
  Company Number: CIO04012012

PATIENT
  Age: 54 Year
  Sex: Female
  Weight: 79.8 kg

DRUGS (1)
  1. CREST W/ FLUORIDE [Suspect]
     Dosage: 1 APPLIC, 2/DAY, INTRORAL
     Dates: start: 20040101

REACTIONS (1)
  - ANAPHYLACTIC REACTION [None]
